FAERS Safety Report 17845136 (Version 1)
Quarter: 2020Q2

REPORT INFORMATION
  Report Type: Spontaneous
  Country: US (occurrence: US)
  Receive Date: 20200531
  Receipt Date: 20200531
  Transmission Date: 20200714
  Serious: No
  Sender: FDA-Public Use
  Company Number: None

PATIENT
  Age: 63 Year
  Sex: Male
  Weight: 86.2 kg

DRUGS (2)
  1. REMDESIVIR (EUA) [Concomitant]
     Active Substance: REMDESIVIR
     Dates: start: 20200529, end: 20200530
  2. REMDESIVIR (EUA) [Suspect]
     Active Substance: REMDESIVIR
     Indication: COVID-19
     Route: 042
     Dates: start: 20200529, end: 20200530

REACTIONS (2)
  - Chronic kidney disease [None]
  - Acute kidney injury [None]

NARRATIVE: CASE EVENT DATE: 20200530
